FAERS Safety Report 14353556 (Version 2)
Quarter: 2018Q2

REPORT INFORMATION
  Report Type: Spontaneous
  Country: US (occurrence: US)
  Receive Date: 20180105
  Receipt Date: 20180627
  Transmission Date: 20180711
  Serious: Yes (Hospitalization)
  Sender: FDA-Public Use
  Company Number: US-BIOGEN-2018BI00505163

PATIENT
  Sex: Female

DRUGS (1)
  1. TYSABRI [Suspect]
     Active Substance: NATALIZUMAB
     Indication: MULTIPLE SCLEROSIS
     Route: 065
     Dates: start: 20160921

REACTIONS (5)
  - Post procedural haemorrhage [Not Recovered/Not Resolved]
  - Kidney malrotation [Unknown]
  - Kidney infection [Recovered/Resolved]
  - Nephrolithiasis [Recovered/Resolved]
  - Ureteric stenosis [Recovered/Resolved]
